FAERS Safety Report 13949689 (Version 1)
Quarter: 2017Q3

REPORT INFORMATION
  Report Type: Report from Study
  Country: US (occurrence: US)
  Receive Date: 20170908
  Receipt Date: 20170908
  Transmission Date: 20171128
  Serious: Yes (Other)
  Sender: FDA-Public Use
  Company Number: US-PFIZER INC-2017388256

PATIENT
  Sex: Male

DRUGS (1)
  1. DILANTIN [Suspect]
     Active Substance: PHENYTOIN
     Dosage: 900 MG, SINGLE, (NINE 100-MG CAPSULES OF DILANTIN)
     Route: 048

REACTIONS (1)
  - Electrocardiogram PR shortened [Unknown]
